FAERS Safety Report 10765761 (Version 1)
Quarter: 2015Q1

REPORT INFORMATION
  Report Type: Report from Study
  Country: CA (occurrence: CA)
  Receive Date: 20150205
  Receipt Date: 20150205
  Transmission Date: 20150721
  Serious: Yes (Other)
  Sender: FDA-Public Use
  Company Number: CA-MYLANLABS-2015M1003001

PATIENT

DRUGS (2)
  1. PROPRANOLOL [Suspect]
     Active Substance: PROPRANOLOL\PROPRANOLOL HYDROCHLORIDE
     Indication: INFANTILE HAEMANGIOMA
     Dosage: 0.5 MG/KG/DAY DIVIDED EVERY 8H, SLOWLY TITRATED OVER 1-2 WEEKS
     Route: 065
  2. PROPRANOLOL [Suspect]
     Active Substance: PROPRANOLOL\PROPRANOLOL HYDROCHLORIDE
     Indication: OFF LABEL USE
     Dosage: 2 MG/KG/DAY DIVIDED EVERY 8H
     Route: 065

REACTIONS (1)
  - Seizure [Recovering/Resolving]
